FAERS Safety Report 22177736 (Version 1)
Quarter: 2023Q2

REPORT INFORMATION
  Report Type: Spontaneous
  Country: US (occurrence: None)
  Receive Date: 20230404
  Receipt Date: 20230404
  Transmission Date: 20230721
  Serious: Yes (Hospitalization)
  Sender: FDA-Public Use
  Company Number: None

PATIENT
  Sex: Female

DRUGS (1)
  1. TACROLIMUS [Suspect]
     Active Substance: TACROLIMUS
     Indication: Renal transplant
     Dosage: OTHER QUANTITY : 5MG AM 4MG PM;?FREQUENCY : TWICE A DAY;?
     Route: 048
     Dates: start: 201809

REACTIONS (3)
  - Dehydration [None]
  - Diarrhoea [None]
  - Urinary tract infection [None]
